FAERS Safety Report 7151161-5 (Version None)
Quarter: 2010Q4

REPORT INFORMATION
  Report Type: 
  Country: None (occurrence: None)
  Receive Date: 20101210
  Receipt Date: 20101117
  Transmission Date: 20110411
  Serious: Yes (Hospitalization)
  Sender: FDA-Public Use
  Company Number: JP-BAYER-201015868BYL

PATIENT
  Age: 34 Year
  Sex: Female

DRUGS (3)
  1. NEXAVAR [Suspect]
     Indication: RENAL CELL CARCINOMA
     Route: 048
     Dates: start: 20080301
  2. OXYCODONE HYDROCHLORIDE [Concomitant]
     Dosage: 10 MG (DAILY DOSE), , ORAL
     Route: 048
     Dates: start: 20080301
  3. MORPHINE HYDROCHLORIDE [Concomitant]
     Dosage: 5 MG (DAILY DOSE), , ORAL
     Route: 048
     Dates: start: 20080301

REACTIONS (3)
  - MALAISE [None]
  - OEDEMA [None]
  - PAIN [None]
